FAERS Safety Report 18055827 (Version 1)
Quarter: 2020Q3

REPORT INFORMATION
  Report Type: Report from Study
  Country: US (occurrence: US)
  Receive Date: 20200722
  Receipt Date: 20200722
  Transmission Date: 20201103
  Serious: Yes (Hospitalization)
  Sender: FDA-Public Use
  Company Number: US-ACTELION-A-US2020-207177

PATIENT
  Sex: Female
  Weight: 87.08 kg

DRUGS (4)
  1. UPTRAVI [Suspect]
     Active Substance: SELEXIPAG
     Indication: PULMONARY ARTERIAL HYPERTENSION
     Dosage: 400 MCG, BID
     Route: 048
     Dates: end: 202006
  2. ALYQ [Concomitant]
     Active Substance: TADALAFIL
  3. LETAIRIS [Concomitant]
     Active Substance: AMBRISENTAN
  4. ASPIRIN (E.C.) [Concomitant]
     Active Substance: ASPIRIN

REACTIONS (8)
  - Fall [Unknown]
  - Asthenia [Unknown]
  - Urinary incontinence [Unknown]
  - Blood electrolytes abnormal [Unknown]
  - Anticoagulation drug level below therapeutic [Unknown]
  - Blood potassium decreased [Unknown]
  - Anal incontinence [Unknown]
  - Muscular weakness [Unknown]
